FAERS Safety Report 22180739 (Version 3)
Quarter: 2024Q4

REPORT INFORMATION
  Report Type: Spontaneous
  Country: US (occurrence: US)
  Receive Date: 20230406
  Receipt Date: 20241217
  Transmission Date: 20250114
  Serious: No
  Sender: LUPIN
  Company Number: US-LUPIN PHARMACEUTICALS INC.-2023-02596

PATIENT

DRUGS (3)
  1. ALBUTEROL SULFATE [Suspect]
     Active Substance: ALBUTEROL SULFATE
     Indication: Asthma
     Dosage: UNK, PRN FIRST INHALER
  2. ALBUTEROL SULFATE [Suspect]
     Active Substance: ALBUTEROL SULFATE
     Dosage: UNK, PRN SECOND INHALER
  3. ALBUTEROL SULFATE [Suspect]
     Active Substance: ALBUTEROL SULFATE
     Dosage: UNK, PRN THIRD INHALER

REACTIONS (3)
  - Drug dose omission by device [Unknown]
  - Device delivery system issue [Unknown]
  - No adverse event [Unknown]
